FAERS Safety Report 14496664 (Version 2)
Quarter: 2018Q1

REPORT INFORMATION
  Report Type: Spontaneous
  Country: JP (occurrence: JP)
  Receive Date: 20180207
  Receipt Date: 20180305
  Transmission Date: 20180509
  Serious: Yes (Hospitalization)
  Sender: FDA-Public Use
  Company Number: PHJP2018JP002622

PATIENT
  Age: 82 Year
  Sex: Male

DRUGS (4)
  1. EXELON PATCH [Suspect]
     Active Substance: RIVASTIGMINE
     Dosage: 6.9 MG, QD  (PATCH 7.5 (CM2), RIVASTIGMINE BASE 13.5 MG)
     Route: 062
  2. EXELON PATCH [Suspect]
     Active Substance: RIVASTIGMINE
     Indication: DEMENTIA ALZHEIMER^S TYPE
     Dosage: UNK
     Route: 062
  3. EXELON PATCH [Suspect]
     Active Substance: RIVASTIGMINE
     Dosage: 6.9 MG, QD  (PATCH 7.5 (CM2), RIVASTIGMINE BASE 13.5 MG)
     Route: 062
  4. EXELON PATCH [Suspect]
     Active Substance: RIVASTIGMINE
     Dosage: 4.6 MG, QD (PATCH 5 (CM2), RIVASTIGMINE BASE 9 MG)
     Route: 062

REACTIONS (4)
  - Nasopharyngitis [Not Recovered/Not Resolved]
  - Pneumonia [Not Recovered/Not Resolved]
  - Wrong technique in product usage process [Unknown]
  - Asthenia [Unknown]
